FAERS Safety Report 19481521 (Version 1)
Quarter: 2021Q3

REPORT INFORMATION
  Report Type: Report from Study
  Country: None (occurrence: CA)
  Receive Date: 20210701
  Receipt Date: 20210701
  Transmission Date: 20211014
  Serious: Yes (Hospitalization)
  Sender: FDA-Public Use
  Company Number: CA-ABBVIE-21K-028-3970725-00

PATIENT
  Sex: Female

DRUGS (1)
  1. HUMIRA [Suspect]
     Active Substance: ADALIMUMAB
     Indication: CROHN^S DISEASE
     Route: 058
     Dates: start: 20170626

REACTIONS (5)
  - Suicide attempt [Recovered/Resolved]
  - Depression [Unknown]
  - Electric shock [Unknown]
  - Pneumonia [Recovered/Resolved]
  - Amnesia [Unknown]
